FAERS Safety Report 20896405 (Version 3)
Quarter: 2022Q3

REPORT INFORMATION
  Report Type: Spontaneous
  Country: US (occurrence: US)
  Receive Date: 20220531
  Receipt Date: 20220822
  Transmission Date: 20221027
  Serious: Yes (Hospitalization, Other)
  Sender: FDA-Public Use
  Company Number: US-UPSHER-SMITH LABORATORIES, LLC-2022USL00359

PATIENT
  Sex: Male
  Weight: 102.06 kg

DRUGS (34)
  1. JANTOVEN [Suspect]
     Active Substance: WARFARIN SODIUM
     Indication: Coagulopathy
     Dosage: UNK
     Route: 048
  2. JANTOVEN [Suspect]
     Active Substance: WARFARIN SODIUM
     Indication: Aortic valve replacement
     Dosage: 5 MG ( 2 PILLS) 5 DAYS A WEEK
     Route: 048
     Dates: start: 2021
  3. JANTOVEN [Suspect]
     Active Substance: WARFARIN SODIUM
     Dosage: 5 MG 3X/WEEK, 3.75 MG 4X/WEEK
     Route: 048
     Dates: end: 2022
  4. JANTOVEN [Suspect]
     Active Substance: WARFARIN SODIUM
     Dosage: 7.5 MG, 1X/DAY
     Route: 048
     Dates: start: 2022, end: 202205
  5. JANTOVEN [Suspect]
     Active Substance: WARFARIN SODIUM
     Dosage: 7.5 MG DAILY AND ^EXTRA^ ON CERTAIN DAYS
     Route: 048
     Dates: start: 202205, end: 202206
  6. JANTOVEN [Suspect]
     Active Substance: WARFARIN SODIUM
     Dosage: 7.5 MG DAILY AND 10 MG ON FRIDAYS
     Route: 048
     Dates: start: 202206
  7. JANTOVEN [Suspect]
     Active Substance: WARFARIN SODIUM
     Dosage: 5 MG, 1X/DAY
     Route: 048
  8. TOPROL XL [Concomitant]
     Active Substance: METOPROLOL SUCCINATE
     Dosage: 25 MG, 1X/DAY
     Route: 048
  9. ULORIC [Concomitant]
     Active Substance: FEBUXOSTAT
     Dosage: 80 MG, 1X/DAY
     Route: 048
  10. LEVOTHYROXINE SODIUM [Concomitant]
     Active Substance: LEVOTHYROXINE SODIUM
     Dosage: 200 ?G
     Route: 048
  11. LEVOTHYROXINE SODIUM [Concomitant]
     Active Substance: LEVOTHYROXINE SODIUM
     Dosage: 100 ?G, 1X/DAY, IN THE AM
  12. LOSARTAN POTASSIUM [Concomitant]
     Active Substance: LOSARTAN POTASSIUM
     Dosage: 25 MG, 1X/DAY
  13. NORVASC [Concomitant]
     Active Substance: AMLODIPINE BESYLATE
     Dosage: 5 MG, 1X/DAY
     Route: 048
  14. VASCEPA [Concomitant]
     Active Substance: ICOSAPENT ETHYL
     Dosage: 2 GRAMS IN THE MORNING AND 2 GRAMS AT NIGHT WITH FOOD
     Route: 048
  15. LASIX [Concomitant]
     Active Substance: FUROSEMIDE
     Dosage: 20 MG, 1X/DAY
     Route: 048
  16. RANEXA [Concomitant]
     Active Substance: RANOLAZINE
     Dosage: 1000 MG, 2X/DAY
     Route: 048
  17. RANEXA [Concomitant]
     Active Substance: RANOLAZINE
     Dosage: 500 MG, 2X/DAY
  18. AMIODARONE HYDROCHLORIDE [Concomitant]
     Active Substance: AMIODARONE HYDROCHLORIDE
     Dosage: 200 MG, 2X/DAY
     Route: 048
  19. AMIODARONE HYDROCHLORIDE [Concomitant]
     Active Substance: AMIODARONE HYDROCHLORIDE
     Dosage: 200 MG, 1X/DAY
     Route: 048
  20. NOVOLOG MIX 70/30 [Concomitant]
     Active Substance: INSULIN ASPART
     Dosage: SLIDING SCALE (35 TO 45 UNITS), 2X/DAY, WITH MEALS
     Route: 058
  21. VICTOZA [Concomitant]
     Active Substance: LIRAGLUTIDE
     Dosage: 1.2 MG, 1X/DAY
     Route: 058
  22. VITAMINS [Concomitant]
     Active Substance: VITAMINS
  23. NORCO [Concomitant]
     Active Substance: ACETAMINOPHEN\HYDROCODONE BITARTRATE
     Dosage: 10/325 MG, 2X/DAY AS NEEDED
     Route: 048
  24. TRICOR [Concomitant]
     Active Substance: FENOFIBRATE
     Dosage: 48 MG, 1X/DAY
     Route: 048
  25. COLCRYS [Concomitant]
     Active Substance: COLCHICINE
     Dosage: 0.6 MG, 2X/DAY AS NEEDED
     Route: 048
  26. VITAMIN D [Concomitant]
     Active Substance: VITAMIN D NOS
     Dosage: 2000 IU, 1X/DAY
     Route: 048
  27. TRIAMCINOLONE ACETONIDE [Concomitant]
     Active Substance: TRIAMCINOLONE ACETONIDE
     Dosage: 1 APPLICATION TO AFFECTED AREA EXTERNALLY TWICE A DAY
     Route: 061
  28. REPATHA [Concomitant]
     Active Substance: EVOLOCUMAB
     Dosage: 140 MG
     Route: 058
  29. NITROGLYCERIN [Concomitant]
     Active Substance: NITROGLYCERIN
     Dosage: 0.4 MG, AS NEEDED FOR CHEST PAIN
     Route: 060
  30. ALBUTEROL SULFATE [Concomitant]
     Active Substance: ALBUTEROL SULFATE
     Dosage: 2 PUFFS AS NEEDED EVERY 4 HOURS
  31. DULERA [Concomitant]
     Active Substance: FORMOTEROL FUMARATE DIHYDRATE\MOMETASONE FUROATE
     Dosage: 200-10 ?G (2 PUFFS) TWICE A DAY
  32. CLOBETASOL PROPIONATE [Concomitant]
     Active Substance: CLOBETASOL PROPIONATE
     Dosage: 1 APPLICATION TO AFFECTED AREA EXTERNALLY TWICE A DAY
     Route: 061
  33. VALTREX [Concomitant]
     Active Substance: VALACYCLOVIR HYDROCHLORIDE
     Dosage: 1 G, 2X/DAY
     Route: 048
  34. ACETAMINOPHEN\HYDROCODONE [Concomitant]
     Active Substance: ACETAMINOPHEN\HYDROCODONE
     Dosage: 1 TABLETS, 4X/DAY (EVERY 6 HOURS) AS NEEDED
     Route: 048

REACTIONS (8)
  - Blood glucose increased [Recovered/Resolved]
  - Transient ischaemic attack [Unknown]
  - Cardioversion [Recovered/Resolved]
  - Vascular dementia [Unknown]
  - Angina unstable [Recovered/Resolved]
  - Dyskinesia [Unknown]
  - Blood glucose decreased [Recovered/Resolved]
  - International normalised ratio decreased [Unknown]

NARRATIVE: CASE EVENT DATE: 20210101
